FAERS Safety Report 24910554 (Version 2)
Quarter: 2025Q2

REPORT INFORMATION
  Report Type: Report from Study
  Country: US (occurrence: US)
  Receive Date: 20250131
  Receipt Date: 20250408
  Transmission Date: 20250717
  Serious: Yes (Other)
  Sender: NOVARTIS
  Company Number: US-002147023-NVSC2024US226915

PATIENT
  Sex: Male

DRUGS (4)
  1. KESIMPTA [Suspect]
     Active Substance: OFATUMUMAB
     Indication: Product used for unknown indication
     Dosage: 20 MG, QW
     Route: 058
  2. DICLOFENAC [Concomitant]
     Active Substance: DICLOFENAC
     Indication: Product used for unknown indication
     Route: 065
  3. VITAMINS [Concomitant]
     Active Substance: VITAMINS
     Indication: Product used for unknown indication
     Route: 065
  4. ADDERALL [Concomitant]
     Active Substance: AMPHETAMINE ASPARTATE\AMPHETAMINE SULFATE\DEXTROAMPHETAMINE SACCHARATE\DEXTROAMPHETAMINE SULFATE
     Indication: Product used for unknown indication
     Route: 065

REACTIONS (14)
  - Paralysis [Unknown]
  - Depressed level of consciousness [Unknown]
  - Pain [Unknown]
  - Skin lesion [Unknown]
  - Motor dysfunction [Unknown]
  - Stress fracture [Unknown]
  - Urinary tract infection [Unknown]
  - Depressed mood [Unknown]
  - Fall [Unknown]
  - Vision blurred [Unknown]
  - Blood testosterone decreased [Unknown]
  - Swelling [Unknown]
  - Balance disorder [Unknown]
  - Muscle spasms [Unknown]
